FAERS Safety Report 10099737 (Version 2)
Quarter: 2014Q2

REPORT INFORMATION
  Report Type: Spontaneous
  Country: US (occurrence: US)
  Receive Date: 20140423
  Receipt Date: 20140423
  Transmission Date: 20141212
  Serious: Yes (Hospitalization)
  Sender: FDA-Public Use
  Company Number: US-GILEAD-2013-0072037

PATIENT
  Sex: Female

DRUGS (4)
  1. LETAIRIS [Suspect]
     Indication: PULMONARY HYPERTENSION
     Dates: start: 20130221
  2. LETAIRIS [Suspect]
     Indication: LIVER DISORDER
  3. TYVASO [Concomitant]
  4. ADCIRCA [Concomitant]

REACTIONS (2)
  - Fluid retention [Unknown]
  - Peripheral swelling [Unknown]
